FAERS Safety Report 6914570-2 (Version None)
Quarter: 2010Q3

REPORT INFORMATION
  Report Type: 
  Country: None (occurrence: None)
  Receive Date: 20100809
  Receipt Date: 20100802
  Transmission Date: 20110219
  Serious: Yes (Hospitalization)
  Sender: FDA-Public Use
  Company Number: GB-BAYER-201034654GPV

PATIENT
  Sex: Male

DRUGS (2)
  1. CIPROFLOXACIN [Suspect]
     Indication: GASTROENTERITIS SALMONELLA
     Route: 048
  2. CIPROFLOXACIN [Suspect]
     Route: 042

REACTIONS (2)
  - COLECTOMY [None]
  - SPLENECTOMY [None]
